FAERS Safety Report 4834213-1 (Version None)
Quarter: 2005Q4

REPORT INFORMATION
  Report Type: 
  Country: None (occurrence: None)
  Receive Date: 20051122
  Receipt Date: 20051109
  Transmission Date: 20060501
  Serious: Yes (Hospitalization)
  Sender: FDA-Public Use
  Company Number: 2005AP05810

PATIENT
  Age: 84 Year
  Sex: Male
  Weight: 95 kg

DRUGS (4)
  1. NEXIUM [Suspect]
     Indication: DUODENAL ULCER
     Route: 048
     Dates: end: 20050311
  2. FRUSEMIDE [Concomitant]
     Indication: GLOMERULONEPHRITIS CHRONIC
     Dates: end: 20050311
  3. F.G.F. [Concomitant]
     Indication: ANAEMIA
  4. CELEBREX [Concomitant]
     Indication: OSTEOARTHRITIS

REACTIONS (2)
  - NEPHRITIS ALLERGIC [None]
  - NEPHRITIS INTERSTITIAL [None]
